FAERS Safety Report 15109550 (Version 6)
Quarter: 2019Q1

REPORT INFORMATION
  Report Type: Report from Study
  Country: US (occurrence: US)
  Receive Date: 20180705
  Receipt Date: 20190108
  Transmission Date: 20190417
  Serious: Yes (Hospitalization, Other)
  Sender: FDA-Public Use
  Company Number: US-B.I. PHARMACEUTICALS,INC./RIDGEFIELD-2018-BI-016657

PATIENT
  Age: 75 Year
  Sex: Female

DRUGS (1)
  1. OFEV [Suspect]
     Active Substance: NINTEDANIB
     Indication: IDIOPATHIC PULMONARY FIBROSIS
     Route: 048
     Dates: start: 20180207

REACTIONS (29)
  - Haemoglobin decreased [Not Recovered/Not Resolved]
  - Productive cough [Recovering/Resolving]
  - Diarrhoea [Unknown]
  - Weight decreased [Unknown]
  - Pain [Unknown]
  - Dyspnoea exertional [Unknown]
  - Nausea [Unknown]
  - Arthritis [Unknown]
  - Haematoma [Unknown]
  - Decreased appetite [Unknown]
  - Feeling hot [Unknown]
  - Clostridium difficile infection [Not Recovered/Not Resolved]
  - Frequent bowel movements [Unknown]
  - Platelet count decreased [Not Recovered/Not Resolved]
  - Dyspnoea [Not Recovered/Not Resolved]
  - Diarrhoea [Unknown]
  - Cardiac disorder [Unknown]
  - Sinus disorder [Unknown]
  - Pulmonary mass [Unknown]
  - Haematochezia [Not Recovered/Not Resolved]
  - Vomiting [Unknown]
  - Osteoporosis [Unknown]
  - Depression [Unknown]
  - Herpes zoster [Unknown]
  - Spinal fracture [Not Recovered/Not Resolved]
  - Lung carcinoma cell type unspecified stage IV [Unknown]
  - Heart rate increased [Unknown]
  - Vertebroplasty [Unknown]
  - Escherichia infection [Unknown]

NARRATIVE: CASE EVENT DATE: 20180628
